FAERS Safety Report 6683154-6 (Version None)
Quarter: 2010Q2

REPORT INFORMATION
  Report Type: 
  Country: None (occurrence: None)
  Receive Date: 20100415
  Receipt Date: 20100409
  Transmission Date: 20101027
  Serious: Yes (Hospitalization)
  Sender: FDA-Public Use
  Company Number: CA-BRISTOL-MYERS SQUIBB COMPANY-15059017

PATIENT
  Age: 74 Year
  Sex: Female

DRUGS (3)
  1. DESYREL [Suspect]
     Indication: INSOMNIA
     Dosage: MANY YEARS
  2. DESYREL [Suspect]
     Indication: FIBROMYALGIA
     Dosage: MANY YEARS
  3. HYDROCHLOROTHIAZIDE [Concomitant]

REACTIONS (2)
  - GENERAL PHYSICAL HEALTH DETERIORATION [None]
  - INAPPROPRIATE ANTIDIURETIC HORMONE SECRETION [None]
